FAERS Safety Report 6999375-9 (Version None)
Quarter: 2010Q3

REPORT INFORMATION
  Report Type: 
  Country: None (occurrence: None)
  Receive Date: 20100920
  Receipt Date: 20100624
  Transmission Date: 20110219
  Serious: No
  Sender: FDA-Public Use
  Company Number: US-ASTRAZENECA-2010SE25604

PATIENT
  Age: 17725 Day
  Sex: Female

DRUGS (1)
  1. SEROQUEL [Suspect]
     Route: 048
     Dates: start: 20060101

REACTIONS (6)
  - BLISTER [None]
  - EATING DISORDER [None]
  - HYPOALBUMINAEMIA [None]
  - INSOMNIA [None]
  - OEDEMA PERIPHERAL [None]
  - SWELLING [None]
